FAERS Safety Report 24116222 (Version 2)
Quarter: 2024Q3

REPORT INFORMATION
  Report Type: Spontaneous
  Country: CA (occurrence: CA)
  Receive Date: 20240722
  Receipt Date: 20240823
  Transmission Date: 20241017
  Serious: Yes (Death, Life-Threatening, Hospitalization, Disabling, Other)
  Sender: Haleon PLC
  Company Number: CA-002147023-NVSC2024CA146150

PATIENT
  Age: 44 Year
  Sex: Female
  Weight: 70 kg

DRUGS (308)
  1. DICLOFENAC [Suspect]
     Active Substance: DICLOFENAC
     Indication: Product used for unknown indication
  2. DICLOFENAC [Suspect]
     Active Substance: DICLOFENAC
  3. PSEUDOEPHEDRINE HYDROCHLORIDE [Suspect]
     Active Substance: PSEUDOEPHEDRINE HYDROCHLORIDE
     Indication: Rheumatoid arthritis
  4. PSEUDOEPHEDRINE HYDROCHLORIDE [Suspect]
     Active Substance: PSEUDOEPHEDRINE HYDROCHLORIDE
  5. PSEUDOEPHEDRINE HYDROCHLORIDE [Suspect]
     Active Substance: PSEUDOEPHEDRINE HYDROCHLORIDE
  6. PSEUDOEPHEDRINE HYDROCHLORIDE [Suspect]
     Active Substance: PSEUDOEPHEDRINE HYDROCHLORIDE
  7. DICLOFENAC SODIUM [Suspect]
     Active Substance: DICLOFENAC\DICLOFENAC SODIUM
     Indication: Rheumatoid arthritis
  8. DICLOFENAC SODIUM [Suspect]
     Active Substance: DICLOFENAC\DICLOFENAC SODIUM
  9. DICLOFENAC SODIUM [Suspect]
     Active Substance: DICLOFENAC\DICLOFENAC SODIUM
  10. ACETAMINOPHEN [Suspect]
     Active Substance: ACETAMINOPHEN
     Indication: Rheumatoid arthritis
  11. ACETAMINOPHEN [Suspect]
     Active Substance: ACETAMINOPHEN
  12. CETIRIZINE HYDROCHLORIDE [Suspect]
     Active Substance: CETIRIZINE HYDROCHLORIDE
     Indication: Rheumatoid arthritis
  13. CETIRIZINE HYDROCHLORIDE [Suspect]
     Active Substance: CETIRIZINE HYDROCHLORIDE
  14. CETIRIZINE HYDROCHLORIDE [Suspect]
     Active Substance: CETIRIZINE HYDROCHLORIDE
  15. CETIRIZINE HYDROCHLORIDE [Suspect]
     Active Substance: CETIRIZINE HYDROCHLORIDE
  16. CETIRIZINE HYDROCHLORIDE [Suspect]
     Active Substance: CETIRIZINE HYDROCHLORIDE
  17. CETIRIZINE HYDROCHLORIDE [Suspect]
     Active Substance: CETIRIZINE HYDROCHLORIDE
  18. CETIRIZINE HYDROCHLORIDE [Suspect]
     Active Substance: CETIRIZINE HYDROCHLORIDE
  19. CETIRIZINE HYDROCHLORIDE [Suspect]
     Active Substance: CETIRIZINE HYDROCHLORIDE
  20. CETIRIZINE HYDROCHLORIDE [Suspect]
     Active Substance: CETIRIZINE HYDROCHLORIDE
  21. CETIRIZINE HYDROCHLORIDE [Suspect]
     Active Substance: CETIRIZINE HYDROCHLORIDE
  22. CETIRIZINE HYDROCHLORIDE [Suspect]
     Active Substance: CETIRIZINE HYDROCHLORIDE
  23. CETIRIZINE HYDROCHLORIDE [Suspect]
     Active Substance: CETIRIZINE HYDROCHLORIDE
  24. ALENDRONATE SODIUM [Suspect]
     Active Substance: ALENDRONATE SODIUM
     Indication: Rheumatoid arthritis
  25. PREDNISONE [Suspect]
     Active Substance: PREDNISONE
     Indication: Systemic lupus erythematosus
  26. PREDNISONE [Suspect]
     Active Substance: PREDNISONE
     Indication: Synovitis
  27. PREDNISONE [Suspect]
     Active Substance: PREDNISONE
     Indication: Rheumatoid arthritis
  28. PREDNISONE [Suspect]
     Active Substance: PREDNISONE
     Indication: Psoriatic arthropathy
  29. PREDNISONE [Suspect]
     Active Substance: PREDNISONE
     Indication: Pemphigus
  30. PREDNISONE [Suspect]
     Active Substance: PREDNISONE
     Indication: Inflammation
  31. PREDNISONE [Suspect]
     Active Substance: PREDNISONE
     Indication: Bursitis
  32. PREDNISONE [Suspect]
     Active Substance: PREDNISONE
     Indication: Systemic lupus erythematosus
  33. PREDNISONE [Suspect]
     Active Substance: PREDNISONE
     Indication: Synovitis
  34. PREDNISONE [Suspect]
     Active Substance: PREDNISONE
     Indication: Rheumatoid arthritis
  35. PREDNISONE [Suspect]
     Active Substance: PREDNISONE
     Indication: Psoriatic arthropathy
  36. PREDNISONE [Suspect]
     Active Substance: PREDNISONE
     Indication: Pemphigus
  37. PREDNISONE [Suspect]
     Active Substance: PREDNISONE
     Indication: Inflammation
  38. PREDNISONE [Suspect]
     Active Substance: PREDNISONE
     Indication: Bursitis
  39. ARAVA [Suspect]
     Active Substance: LEFLUNOMIDE
     Indication: Rheumatoid arthritis
  40. ARAVA [Suspect]
     Active Substance: LEFLUNOMIDE
  41. ARAVA [Suspect]
     Active Substance: LEFLUNOMIDE
  42. ARAVA [Suspect]
     Active Substance: LEFLUNOMIDE
  43. ARAVA [Suspect]
     Active Substance: LEFLUNOMIDE
  44. ARAVA [Suspect]
     Active Substance: LEFLUNOMIDE
  45. ARAVA [Suspect]
     Active Substance: LEFLUNOMIDE
  46. DESOXIMETASONE [Suspect]
     Active Substance: DESOXIMETASONE
     Indication: Rheumatoid arthritis
  47. DESOXIMETASONE [Suspect]
     Active Substance: DESOXIMETASONE
  48. DESOXIMETASONE [Suspect]
     Active Substance: DESOXIMETASONE
  49. DESOXIMETASONE [Suspect]
     Active Substance: DESOXIMETASONE
  50. DESOXIMETASONE [Suspect]
     Active Substance: DESOXIMETASONE
  51. DESOXIMETASONE [Suspect]
     Active Substance: DESOXIMETASONE
  52. ENBREL [Suspect]
     Active Substance: BENZYL ALCOHOL\ETANERCEPT
     Indication: Rheumatoid arthritis
     Dosage: 1 EVERY, 1 WEEKS
  53. ENBREL [Suspect]
     Active Substance: BENZYL ALCOHOL\ETANERCEPT
  54. ENBREL [Suspect]
     Active Substance: BENZYL ALCOHOL\ETANERCEPT
  55. ENBREL [Suspect]
     Active Substance: BENZYL ALCOHOL\ETANERCEPT
  56. ENBREL [Suspect]
     Active Substance: BENZYL ALCOHOL\ETANERCEPT
  57. ENBREL [Suspect]
     Active Substance: BENZYL ALCOHOL\ETANERCEPT
  58. ENBREL [Suspect]
     Active Substance: BENZYL ALCOHOL\ETANERCEPT
  59. ENBREL [Suspect]
     Active Substance: BENZYL ALCOHOL\ETANERCEPT
  60. ENBREL [Suspect]
     Active Substance: BENZYL ALCOHOL\ETANERCEPT
  61. FOSAMAX [Suspect]
     Active Substance: ALENDRONATE SODIUM
     Indication: Rheumatoid arthritis
  62. FOSAMAX [Suspect]
     Active Substance: ALENDRONATE SODIUM
  63. FOSAMAX [Suspect]
     Active Substance: ALENDRONATE SODIUM
  64. FOSAMAX [Suspect]
     Active Substance: ALENDRONATE SODIUM
  65. FOSAMAX [Suspect]
     Active Substance: ALENDRONATE SODIUM
  66. FOSAMAX [Suspect]
     Active Substance: ALENDRONATE SODIUM
  67. FOSAMAX [Suspect]
     Active Substance: ALENDRONATE SODIUM
  68. FOSAMAX [Suspect]
     Active Substance: ALENDRONATE SODIUM
  69. FOSAMAX [Suspect]
     Active Substance: ALENDRONATE SODIUM
  70. FOSAMAX [Suspect]
     Active Substance: ALENDRONATE SODIUM
  71. FOSAMAX [Suspect]
     Active Substance: ALENDRONATE SODIUM
  72. FOSAMAX [Suspect]
     Active Substance: ALENDRONATE SODIUM
  73. ESTRADIOL [Suspect]
     Active Substance: ESTRADIOL
     Indication: Product used for unknown indication
  74. HUMIRA [Suspect]
     Active Substance: ADALIMUMAB
     Indication: Rheumatoid arthritis
     Route: 058
  75. HUMIRA [Suspect]
     Active Substance: ADALIMUMAB
     Indication: Psoriatic arthropathy
  76. HUMIRA [Suspect]
     Active Substance: ADALIMUMAB
     Indication: Rheumatoid arthritis
  77. HUMIRA [Suspect]
     Active Substance: ADALIMUMAB
     Indication: Psoriatic arthropathy
  78. HUMIRA [Suspect]
     Active Substance: ADALIMUMAB
  79. HUMIRA [Suspect]
     Active Substance: ADALIMUMAB
  80. HUMIRA [Suspect]
     Active Substance: ADALIMUMAB
  81. HUMIRA [Suspect]
     Active Substance: ADALIMUMAB
  82. HYDROCORTISONE [Suspect]
     Active Substance: HYDROCORTISONE\HYDROCORTISONE ACETATE
     Indication: Rheumatoid arthritis
  83. HYDROCORTISONE [Suspect]
     Active Substance: HYDROCORTISONE\HYDROCORTISONE ACETATE
  84. HYDROCORTISONE [Suspect]
     Active Substance: HYDROCORTISONE\HYDROCORTISONE ACETATE
  85. HYDROCORTISONE [Suspect]
     Active Substance: HYDROCORTISONE\HYDROCORTISONE ACETATE
  86. HYDROCORTISONE [Suspect]
     Active Substance: HYDROCORTISONE\HYDROCORTISONE ACETATE
  87. HYDROCORTISONE [Suspect]
     Active Substance: HYDROCORTISONE\HYDROCORTISONE ACETATE
  88. HYDROXYCHLOROQUINE [Suspect]
     Active Substance: HYDROXYCHLOROQUINE
     Indication: Rheumatoid arthritis
  89. HYDROXYCHLOROQUINE [Suspect]
     Active Substance: HYDROXYCHLOROQUINE
  90. HYDROXYCHLOROQUINE [Suspect]
     Active Substance: HYDROXYCHLOROQUINE
  91. HYDROXYCHLOROQUINE [Suspect]
     Active Substance: HYDROXYCHLOROQUINE
  92. HYDROXYCHLOROQUINE [Suspect]
     Active Substance: HYDROXYCHLOROQUINE
  93. HYDROXYCHLOROQUINE SULFATE [Suspect]
     Active Substance: HYDROXYCHLOROQUINE SULFATE
     Indication: Systemic lupus erythematosus
  94. HYDROXYCHLOROQUINE SULFATE [Suspect]
     Active Substance: HYDROXYCHLOROQUINE SULFATE
     Indication: Rheumatoid arthritis
  95. HYDROXYCHLOROQUINE SULFATE [Suspect]
     Active Substance: HYDROXYCHLOROQUINE SULFATE
  96. HYDROXYCHLOROQUINE SULFATE [Suspect]
     Active Substance: HYDROXYCHLOROQUINE SULFATE
  97. HYDROXYCHLOROQUINE SULFATE [Suspect]
     Active Substance: HYDROXYCHLOROQUINE SULFATE
  98. HYDROXYCHLOROQUINE SULFATE [Suspect]
     Active Substance: HYDROXYCHLOROQUINE SULFATE
  99. HYDROXYCHLOROQUINE SULFATE [Suspect]
     Active Substance: HYDROXYCHLOROQUINE SULFATE
  100. HYDROXYCHLOROQUINE SULFATE [Suspect]
     Active Substance: HYDROXYCHLOROQUINE SULFATE
  101. HYDROXYCHLOROQUINE SULFATE [Suspect]
     Active Substance: HYDROXYCHLOROQUINE SULFATE
  102. HYDROXYCHLOROQUINE SULFATE [Suspect]
     Active Substance: HYDROXYCHLOROQUINE SULFATE
  103. HYDROXYCHLOROQUINE SULFATE [Suspect]
     Active Substance: HYDROXYCHLOROQUINE SULFATE
  104. HYDROXYCHLOROQUINE SULFATE [Suspect]
     Active Substance: HYDROXYCHLOROQUINE SULFATE
  105. HYDROXYCHLOROQUINE SULFATE [Suspect]
     Active Substance: HYDROXYCHLOROQUINE SULFATE
  106. HYDROXYCHLOROQUINE SULFATE [Suspect]
     Active Substance: HYDROXYCHLOROQUINE SULFATE
  107. HYDROXYCHLOROQUINE SULFATE [Suspect]
     Active Substance: HYDROXYCHLOROQUINE SULFATE
  108. HYDROXYCHLOROQUINE SULFATE [Suspect]
     Active Substance: HYDROXYCHLOROQUINE SULFATE
  109. HYDROXYCHLOROQUINE SULFATE [Suspect]
     Active Substance: HYDROXYCHLOROQUINE SULFATE
  110. HYDROXYCHLOROQUINE SULFATE [Suspect]
     Active Substance: HYDROXYCHLOROQUINE SULFATE
  111. LEFLUNOMIDE [Suspect]
     Active Substance: LEFLUNOMIDE
     Indication: Rheumatoid arthritis
  112. LEFLUNOMIDE [Suspect]
     Active Substance: LEFLUNOMIDE
  113. LEFLUNOMIDE [Suspect]
     Active Substance: LEFLUNOMIDE
  114. LEFLUNOMIDE [Suspect]
     Active Substance: LEFLUNOMIDE
  115. LEFLUNOMIDE [Suspect]
     Active Substance: LEFLUNOMIDE
  116. LEFLUNOMIDE [Suspect]
     Active Substance: LEFLUNOMIDE
  117. ACTEMRA [Suspect]
     Active Substance: TOCILIZUMAB
     Indication: Rheumatoid arthritis
  118. ACTEMRA [Suspect]
     Active Substance: TOCILIZUMAB
  119. ACTEMRA [Suspect]
     Active Substance: TOCILIZUMAB
  120. ACTEMRA [Suspect]
     Active Substance: TOCILIZUMAB
  121. ACTEMRA [Suspect]
     Active Substance: TOCILIZUMAB
  122. ACTEMRA [Suspect]
     Active Substance: TOCILIZUMAB
  123. ACTEMRA [Suspect]
     Active Substance: TOCILIZUMAB
  124. ACTEMRA [Suspect]
     Active Substance: TOCILIZUMAB
  125. ACTEMRA [Suspect]
     Active Substance: TOCILIZUMAB
  126. ACTEMRA [Suspect]
     Active Substance: TOCILIZUMAB
  127. ACTEMRA [Suspect]
     Active Substance: TOCILIZUMAB
  128. ACTEMRA [Suspect]
     Active Substance: TOCILIZUMAB
  129. ACTEMRA [Suspect]
     Active Substance: TOCILIZUMAB
  130. ACTEMRA [Suspect]
     Active Substance: TOCILIZUMAB
  131. ACTEMRA [Suspect]
     Active Substance: TOCILIZUMAB
  132. ACTEMRA [Suspect]
     Active Substance: TOCILIZUMAB
  133. ACTEMRA [Suspect]
     Active Substance: TOCILIZUMAB
  134. ACTEMRA [Suspect]
     Active Substance: TOCILIZUMAB
  135. ACTEMRA [Suspect]
     Active Substance: TOCILIZUMAB
  136. ACTEMRA [Suspect]
     Active Substance: TOCILIZUMAB
  137. LEUCOVORIN CALCIUM [Suspect]
     Active Substance: LEUCOVORIN CALCIUM
     Indication: Rheumatoid arthritis
  138. LEUCOVORIN CALCIUM [Suspect]
     Active Substance: LEUCOVORIN CALCIUM
  139. LEUCOVORIN CALCIUM [Suspect]
     Active Substance: LEUCOVORIN CALCIUM
  140. LEUCOVORIN CALCIUM [Suspect]
     Active Substance: LEUCOVORIN CALCIUM
  141. LEUCOVORIN CALCIUM [Suspect]
     Active Substance: LEUCOVORIN CALCIUM
  142. LEUCOVORIN CALCIUM [Suspect]
     Active Substance: LEUCOVORIN CALCIUM
  143. LEUCOVORIN CALCIUM [Suspect]
     Active Substance: LEUCOVORIN CALCIUM
  144. LEUCOVORIN CALCIUM [Suspect]
     Active Substance: LEUCOVORIN CALCIUM
  145. LEUCOVORIN CALCIUM [Suspect]
     Active Substance: LEUCOVORIN CALCIUM
  146. LEUCOVORIN CALCIUM [Suspect]
     Active Substance: LEUCOVORIN CALCIUM
  147. LEUCOVORIN CALCIUM [Suspect]
     Active Substance: LEUCOVORIN CALCIUM
  148. CHLORHEXIDINE [Suspect]
     Active Substance: CHLORHEXIDINE
     Indication: Product used for unknown indication
  149. CHLORHEXIDINE [Suspect]
     Active Substance: CHLORHEXIDINE
  150. CHLORHEXIDINE [Suspect]
     Active Substance: CHLORHEXIDINE
  151. CHLORHEXIDINE [Suspect]
     Active Substance: CHLORHEXIDINE
  152. CHLORHEXIDINE [Suspect]
     Active Substance: CHLORHEXIDINE
  153. CHLORHEXIDINE [Suspect]
     Active Substance: CHLORHEXIDINE
  154. STELARA [Suspect]
     Active Substance: USTEKINUMAB
     Indication: Rheumatoid arthritis
     Route: 058
  155. STELARA [Suspect]
     Active Substance: USTEKINUMAB
  156. STELARA [Suspect]
     Active Substance: USTEKINUMAB
  157. STELARA [Suspect]
     Active Substance: USTEKINUMAB
  158. STELARA [Suspect]
     Active Substance: USTEKINUMAB
  159. STELARA [Suspect]
     Active Substance: USTEKINUMAB
  160. SULFAMETHOXAZOLE [Suspect]
     Active Substance: SULFAMETHOXAZOLE
     Indication: Product used for unknown indication
  161. SULFAMETHOXAZOLE [Suspect]
     Active Substance: SULFAMETHOXAZOLE
  162. SULFAMETHOXAZOLE AND TRIMETHOPRIM [Suspect]
     Active Substance: SULFAMETHOXAZOLE\TRIMETHOPRIM
     Indication: Product used for unknown indication
  163. XELJANZ [Suspect]
     Active Substance: TOFACITINIB CITRATE
     Indication: Rheumatoid arthritis
  164. XELJANZ [Suspect]
     Active Substance: TOFACITINIB CITRATE
     Indication: Psoriatic arthropathy
  165. XELJANZ [Suspect]
     Active Substance: TOFACITINIB CITRATE
  166. XELJANZ [Suspect]
     Active Substance: TOFACITINIB CITRATE
  167. XELJANZ [Suspect]
     Active Substance: TOFACITINIB CITRATE
  168. XELJANZ [Suspect]
     Active Substance: TOFACITINIB CITRATE
  169. XELJANZ [Suspect]
     Active Substance: TOFACITINIB CITRATE
  170. XELJANZ [Suspect]
     Active Substance: TOFACITINIB CITRATE
  171. XELJANZ [Suspect]
     Active Substance: TOFACITINIB CITRATE
  172. XELJANZ [Suspect]
     Active Substance: TOFACITINIB CITRATE
  173. XELJANZ [Suspect]
     Active Substance: TOFACITINIB CITRATE
  174. XELJANZ [Suspect]
     Active Substance: TOFACITINIB CITRATE
  175. XELJANZ [Suspect]
     Active Substance: TOFACITINIB CITRATE
  176. XELJANZ [Suspect]
     Active Substance: TOFACITINIB CITRATE
  177. XELJANZ [Suspect]
     Active Substance: TOFACITINIB CITRATE
  178. XELJANZ [Suspect]
     Active Substance: TOFACITINIB CITRATE
  179. SULFASALAZINE [Suspect]
     Active Substance: SULFASALAZINE
     Indication: Rheumatoid arthritis
  180. SULFASALAZINE [Suspect]
     Active Substance: SULFASALAZINE
  181. SULFASALAZINE [Suspect]
     Active Substance: SULFASALAZINE
  182. SULFASALAZINE [Suspect]
     Active Substance: SULFASALAZINE
  183. SULFASALAZINE [Suspect]
     Active Substance: SULFASALAZINE
  184. SULFASALAZINE [Suspect]
     Active Substance: SULFASALAZINE
  185. SULFASALAZINE [Suspect]
     Active Substance: SULFASALAZINE
  186. SULFASALAZINE [Suspect]
     Active Substance: SULFASALAZINE
  187. SULFASALAZINE [Suspect]
     Active Substance: SULFASALAZINE
  188. SULFASALAZINE [Suspect]
     Active Substance: SULFASALAZINE
  189. SULFASALAZINE [Suspect]
     Active Substance: SULFASALAZINE
  190. SULFASALAZINE [Suspect]
     Active Substance: SULFASALAZINE
  191. SULFASALAZINE [Suspect]
     Active Substance: SULFASALAZINE
  192. SULFASALAZINE [Suspect]
     Active Substance: SULFASALAZINE
  193. SULFASALAZINE [Suspect]
     Active Substance: SULFASALAZINE
  194. SULFASALAZINE [Suspect]
     Active Substance: SULFASALAZINE
  195. SULFASALAZINE [Suspect]
     Active Substance: SULFASALAZINE
  196. SULFASALAZINE [Suspect]
     Active Substance: SULFASALAZINE
  197. ACETAMINOPHEN AND CODEINE [Concomitant]
     Active Substance: ACETAMINOPHEN\CODEINE PHOSPHATE
     Indication: Product used for unknown indication
  198. PANTOPRAZOLE [Concomitant]
     Active Substance: PANTOPRAZOLE
     Indication: Product used for unknown indication
  199. PANTOPRAZOLE SODIUM [Concomitant]
     Active Substance: PANTOPRAZOLE SODIUM
     Indication: Product used for unknown indication
  200. SULFASALAZINE [Concomitant]
     Active Substance: SULFASALAZINE
     Indication: Product used for unknown indication
  201. CODEINE [Concomitant]
     Active Substance: CODEINE
     Indication: Product used for unknown indication
  202. CAFFEINE\ERGOTAMINE [Concomitant]
     Active Substance: CAFFEINE\ERGOTAMINE
     Indication: Product used for unknown indication
  203. METHOTREXATE [Suspect]
     Active Substance: METHOTREXATE
     Indication: Rheumatoid arthritis
  204. METHOTREXATE [Suspect]
     Active Substance: METHOTREXATE
  205. METHOTREXATE [Suspect]
     Active Substance: METHOTREXATE
  206. METHOTREXATE [Suspect]
     Active Substance: METHOTREXATE
  207. METHOTREXATE [Suspect]
     Active Substance: METHOTREXATE
  208. METHOTREXATE [Suspect]
     Active Substance: METHOTREXATE
  209. METHOTREXATE [Suspect]
     Active Substance: METHOTREXATE
  210. METHOTREXATE [Suspect]
     Active Substance: METHOTREXATE
  211. METHOTREXATE [Suspect]
     Active Substance: METHOTREXATE
  212. METHOTREXATE [Suspect]
     Active Substance: METHOTREXATE
  213. METHOTREXATE [Suspect]
     Active Substance: METHOTREXATE
  214. METHOTREXATE [Suspect]
     Active Substance: METHOTREXATE
  215. METHOTREXATE [Suspect]
     Active Substance: METHOTREXATE
  216. METHOTREXATE [Suspect]
     Active Substance: METHOTREXATE
  217. METHOTREXATE [Suspect]
     Active Substance: METHOTREXATE
  218. METHOTREXATE [Suspect]
     Active Substance: METHOTREXATE
  219. METHOTREXATE [Suspect]
     Active Substance: METHOTREXATE
  220. METHOTREXATE [Suspect]
     Active Substance: METHOTREXATE
  221. METHOTREXATE [Suspect]
     Active Substance: METHOTREXATE
  222. METHOTREXATE [Suspect]
     Active Substance: METHOTREXATE
  223. METHOTREXATE [Suspect]
     Active Substance: METHOTREXATE
  224. METHOTREXATE [Suspect]
     Active Substance: METHOTREXATE
  225. METHOTREXATE [Suspect]
     Active Substance: METHOTREXATE
  226. METHOTREXATE [Suspect]
     Active Substance: METHOTREXATE
  227. ORENCIA [Suspect]
     Active Substance: ABATACEPT
     Indication: Rheumatoid arthritis
  228. ORENCIA [Suspect]
     Active Substance: ABATACEPT
     Indication: Psoriatic arthropathy
  229. ORENCIA [Suspect]
     Active Substance: ABATACEPT
  230. ORENCIA [Suspect]
     Active Substance: ABATACEPT
  231. ORENCIA [Suspect]
     Active Substance: ABATACEPT
  232. ORENCIA [Suspect]
     Active Substance: ABATACEPT
  233. ORENCIA [Suspect]
     Active Substance: ABATACEPT
  234. ORENCIA [Suspect]
     Active Substance: ABATACEPT
  235. ORENCIA [Suspect]
     Active Substance: ABATACEPT
  236. ORENCIA [Suspect]
     Active Substance: ABATACEPT
  237. ORENCIA [Suspect]
     Active Substance: ABATACEPT
  238. ORENCIA [Suspect]
     Active Substance: ABATACEPT
  239. OXYCODONE [Suspect]
     Active Substance: OXYCODONE
     Indication: Product used for unknown indication
  240. OXYCODONE [Suspect]
     Active Substance: OXYCODONE
  241. OXYCODONE [Suspect]
     Active Substance: OXYCODONE
  242. OXYCODONE [Suspect]
     Active Substance: OXYCODONE
  243. OXYCODONE TEREPHTHALATE [Suspect]
     Active Substance: OXYCODONE TEREPHTHALATE
     Indication: Product used for unknown indication
  244. PHTHALYLSULFATHIAZOLE [Suspect]
     Active Substance: PHTHALYLSULFATHIAZOLE
     Indication: Rheumatoid arthritis
  245. PHTHALYLSULFATHIAZOLE [Suspect]
     Active Substance: PHTHALYLSULFATHIAZOLE
  246. PHTHALYLSULFATHIAZOLE [Suspect]
     Active Substance: PHTHALYLSULFATHIAZOLE
  247. PREDNISONE [Suspect]
     Active Substance: PREDNISONE
     Indication: Systemic lupus erythematosus
  248. PREDNISONE [Suspect]
     Active Substance: PREDNISONE
     Indication: Synovitis
  249. PREDNISONE [Suspect]
     Active Substance: PREDNISONE
     Indication: Rheumatoid arthritis
  250. PREDNISONE [Suspect]
     Active Substance: PREDNISONE
     Indication: Psoriatic arthropathy
  251. PREDNISONE [Suspect]
     Active Substance: PREDNISONE
     Indication: Arthritis
  252. PREDNISONE [Suspect]
     Active Substance: PREDNISONE
  253. PREDNISONE [Suspect]
     Active Substance: PREDNISONE
  254. PREDNISONE [Suspect]
     Active Substance: PREDNISONE
  255. PREDNISONE [Suspect]
     Active Substance: PREDNISONE
  256. PREDNISONE [Suspect]
     Active Substance: PREDNISONE
  257. PREDNISONE [Suspect]
     Active Substance: PREDNISONE
  258. PREDNISONE [Suspect]
     Active Substance: PREDNISONE
  259. PREDNISONE [Suspect]
     Active Substance: PREDNISONE
  260. PREDNISONE [Suspect]
     Active Substance: PREDNISONE
  261. PREDNISONE [Suspect]
     Active Substance: PREDNISONE
  262. PREDNISONE [Suspect]
     Active Substance: PREDNISONE
  263. PREDNISONE [Suspect]
     Active Substance: PREDNISONE
  264. PREDNISONE [Suspect]
     Active Substance: PREDNISONE
  265. CETIRIZINE HYDROCHLORIDE\PSEUDOEPHEDRINE HYDROCHLORIDE [Suspect]
     Active Substance: CETIRIZINE HYDROCHLORIDE\PSEUDOEPHEDRINE HYDROCHLORIDE
     Indication: Rheumatoid arthritis
  266. CETIRIZINE HYDROCHLORIDE\PSEUDOEPHEDRINE HYDROCHLORIDE [Suspect]
     Active Substance: CETIRIZINE HYDROCHLORIDE\PSEUDOEPHEDRINE HYDROCHLORIDE
  267. CORTISONE ACETATE [Suspect]
     Active Substance: CORTISONE ACETATE
     Indication: Rheumatoid arthritis
  268. CORTISONE ACETATE [Suspect]
     Active Substance: CORTISONE ACETATE
  269. CORTISONE ACETATE [Suspect]
     Active Substance: CORTISONE ACETATE
  270. CORTISONE ACETATE [Suspect]
     Active Substance: CORTISONE ACETATE
  271. CORTISONE ACETATE [Suspect]
     Active Substance: CORTISONE ACETATE
  272. CORTISONE ACETATE [Suspect]
     Active Substance: CORTISONE ACETATE
  273. CORTISONE ACETATE [Suspect]
     Active Substance: CORTISONE ACETATE
  274. CORTISONE ACETATE [Suspect]
     Active Substance: CORTISONE ACETATE
  275. CORTISONE ACETATE [Suspect]
     Active Substance: CORTISONE ACETATE
  276. CORTISONE ACETATE [Suspect]
     Active Substance: CORTISONE ACETATE
  277. CORTISONE ACETATE [Suspect]
     Active Substance: CORTISONE ACETATE
  278. REMICADE [Suspect]
     Active Substance: INFLIXIMAB
     Indication: Rheumatoid arthritis
  279. REMICADE [Suspect]
     Active Substance: INFLIXIMAB
  280. REMICADE [Suspect]
     Active Substance: INFLIXIMAB
  281. REMICADE [Suspect]
     Active Substance: INFLIXIMAB
     Dosage: POWDER FOR SOLUTION INTRAVENOUS
     Route: 042
  282. RITUXIMAB [Suspect]
     Active Substance: RITUXIMAB
     Indication: Rheumatoid arthritis
  283. RITUXIMAB [Suspect]
     Active Substance: RITUXIMAB
  284. RITUXIMAB [Suspect]
     Active Substance: RITUXIMAB
  285. RITUXIMAB [Suspect]
     Active Substance: RITUXIMAB
  286. RITUXIMAB [Suspect]
     Active Substance: RITUXIMAB
  287. RITUXIMAB [Suspect]
     Active Substance: RITUXIMAB
  288. SIMPONI [Suspect]
     Active Substance: GOLIMUMAB
     Indication: Rheumatoid arthritis
  289. SIMPONI [Suspect]
     Active Substance: GOLIMUMAB
  290. SIMPONI [Suspect]
     Active Substance: GOLIMUMAB
  291. SIMPONI [Suspect]
     Active Substance: GOLIMUMAB
     Route: 058
  292. SIMPONI [Suspect]
     Active Substance: GOLIMUMAB
  293. SIMPONI [Suspect]
     Active Substance: GOLIMUMAB
  294. SIMPONI [Suspect]
     Active Substance: GOLIMUMAB
  295. FISH OIL [Concomitant]
     Active Substance: FISH OIL
     Indication: Product used for unknown indication
  296. IBUPROFEN [Concomitant]
     Active Substance: IBUPROFEN
     Indication: Product used for unknown indication
  297. LANSOPRAZOLE [Concomitant]
     Active Substance: LANSOPRAZOLE
     Indication: Product used for unknown indication
  298. VITAMIN C [Concomitant]
     Active Substance: ASCORBIC ACID
     Indication: Product used for unknown indication
  299. TYLENOL [Concomitant]
     Active Substance: ACETAMINOPHEN
     Indication: Product used for unknown indication
  300. ACETAMINOPHEN\OXYCODONE HYDROCHLORIDE [Suspect]
     Active Substance: ACETAMINOPHEN\OXYCODONE HYDROCHLORIDE
     Indication: Product used for unknown indication
  301. ATIVAN [Concomitant]
     Active Substance: LORAZEPAM
     Indication: Product used for unknown indication
  302. ERGOCALCIFEROL [Concomitant]
     Active Substance: ERGOCALCIFEROL
     Indication: Product used for unknown indication
  303. GLUCOSAMINE [Concomitant]
     Active Substance: GLUCOSAMINE
     Indication: Product used for unknown indication
  304. TYLENOL WITH CODEINE [Concomitant]
     Active Substance: ACETAMINOPHEN\CODEINE PHOSPHATE
     Indication: Product used for unknown indication
  305. CIMZIA [Suspect]
     Active Substance: CERTOLIZUMAB PEGOL
     Indication: Rheumatoid arthritis
     Dosage: QW (1 EVERY 1 WEEKS)
  306. CIMZIA [Suspect]
     Active Substance: CERTOLIZUMAB PEGOL
     Dosage: QW (1 EVERY 1 WEEKS)
  307. CIMZIA [Suspect]
     Active Substance: CERTOLIZUMAB PEGOL
  308. CIMZIA [Suspect]
     Active Substance: CERTOLIZUMAB PEGOL

REACTIONS (14)
  - Autoimmune disorder [Fatal]
  - Chest pain [Fatal]
  - Condition aggravated [Fatal]
  - Asthma [Fatal]
  - Drug hypersensitivity [Fatal]
  - Lower limb fracture [Fatal]
  - Road traffic accident [Fatal]
  - Gait inability [Fatal]
  - Deep vein thrombosis postoperative [Fatal]
  - Contusion [Fatal]
  - Urticaria [Fatal]
  - Treatment failure [Fatal]
  - Off label use [Fatal]
  - Therapy non-responder [Fatal]
